FAERS Safety Report 5444386-8 (Version None)
Quarter: 2007Q3

REPORT INFORMATION
  Report Type: 
  Country: None (occurrence: None)
  Receive Date: 20070904
  Receipt Date: 20070904
  Transmission Date: 20080115
  Serious: Yes (Hospitalization)
  Sender: FDA-Public Use
  Company Number: None

PATIENT
  Age: 81 Year
  Sex: Female
  Weight: 54.4 kg

DRUGS (14)
  1. CALCITROL 0.25 MCG [Suspect]
     Indication: DRUG USE FOR UNKNOWN INDICATION
     Dosage: 0.5 MCG FOUR TIMES DAILY PO
     Route: 048
     Dates: start: 20070301, end: 20070725
  2. ERGOCALCIFEROL [Suspect]
     Indication: VITAMIN D DEFICIENCY
     Dosage: 50,000 UNITS DAILY PO
     Route: 048
     Dates: start: 20070301, end: 20070725
  3. CITRUCEL [Concomitant]
  4. KLOR-CON [Concomitant]
  5. FOLIC ACID [Concomitant]
  6. TUMS [Concomitant]
  7. AMIODARONE HCL [Concomitant]
  8. AGGRENOX [Concomitant]
  9. FERROUS SULFATE TAB [Concomitant]
  10. LEVOXYL [Concomitant]
  11. TOPROL-XL [Concomitant]
  12. PROTONIX [Concomitant]
  13. PHENYTOIN [Concomitant]
  14. ZOCOR [Concomitant]

REACTIONS (2)
  - HYPERCALCAEMIA [None]
  - RENAL FAILURE ACUTE [None]
